FAERS Safety Report 5315329-2 (Version None)
Quarter: 2007Q2

REPORT INFORMATION
  Report Type: 
  Country: None (occurrence: None)
  Receive Date: 20070427
  Receipt Date: 20070416
  Transmission Date: 20071010
  Serious: Yes (Other)
  Sender: FDA-Public Use
  Company Number: GXKR2007US03531

PATIENT
  Age: 43 Year
  Sex: Male

DRUGS (4)
  1. CAPECITABINE (NGX)(CAPECITABINE) UNKNOWN [Suspect]
     Indication: PANCREATIC CARCINOMA METASTATIC
     Dosage: ORAL
     Route: 048
  2. PACLITAXEL (NGX) (PACLITAXEL)UNKNOWN [Suspect]
     Indication: PANCREATIC CARCINOMA METASTATIC
  3. CYCLOSPORINE [Suspect]
     Indication: PANCREATIC CARCINOMA METASTATIC
  4. MORPHINE [Suspect]
     Indication: PANCREATIC CARCINOMA METASTATIC
     Dosage: ORAL
     Route: 048

REACTIONS (4)
  - ABDOMINAL PAIN [None]
  - COLITIS [None]
  - DIARRHOEA [None]
  - GASTROINTESTINAL HYPOMOTILITY [None]
